FAERS Safety Report 7605176-0 (Version None)
Quarter: 2011Q3

REPORT INFORMATION
  Report Type: 
  Country: None (occurrence: None)
  Receive Date: 20110705
  Receipt Date: 20110624
  Transmission Date: 20111222
  Serious: Yes (Hospitalization)
  Sender: FDA-Public Use
  Company Number: 2011S1000888

PATIENT
  Age: 72 Year
  Sex: Female

DRUGS (6)
  1. LIVALO [Suspect]
     Indication: HYPERCHOLESTEROLAEMIA
     Dates: end: 20080811
  2. LOXOPROFEN SODIUM (LOXOPROFEN SODIIUM) [Suspect]
     Dosage: 1X
     Dates: end: 20080811
  3. HYDROXYZINE HCL [Concomitant]
  4. LORATADINE [Concomitant]
  5. PIPERACILLIN SODIUM [Suspect]
     Dosage: IVDRP
     Route: 041
     Dates: end: 20080811
  6. LANSOPRAZOLE [Concomitant]

REACTIONS (5)
  - ACUTE GENERALISED EXANTHEMATOUS PUSTULOSIS [None]
  - NO THERAPEUTIC RESPONSE [None]
  - DISEASE RECURRENCE [None]
  - PYREXIA [None]
  - LYMPHOCYTE STIMULATION TEST POSITIVE [None]
